FAERS Safety Report 7493508-6 (Version None)
Quarter: 2011Q2

REPORT INFORMATION
  Report Type: 
  Country: None (occurrence: None)
  Receive Date: 20110512
  Receipt Date: 20110503
  Transmission Date: 20111010
  Serious: No
  Sender: FDA-Public Use
  Company Number: B0717791A

PATIENT

DRUGS (1)
  1. PAROXETINE HYDROCHLORIDE [Suspect]
     Indication: DEPRESSION
     Dosage: TRANSPLOACENTARY
     Route: 064

REACTIONS (6)
  - CONVULSION [None]
  - TOXICITY TO VARIOUS AGENTS [None]
  - CYANOSIS [None]
  - BRADYCARDIA [None]
  - MATERNAL DRUGS AFFECTING FOETUS [None]
  - METABOLIC ACIDOSIS [None]
